FAERS Safety Report 14128345 (Version 1)
Quarter: 2017Q4

REPORT INFORMATION
  Report Type: Spontaneous
  Country: US (occurrence: None)
  Receive Date: 20171026
  Receipt Date: 20171026
  Transmission Date: 20180321
  Serious: Yes (Hospitalization)
  Sender: FDA-Public Use
  Company Number: None

PATIENT
  Age: 53 Year
  Sex: Male
  Weight: 68.7 kg

DRUGS (1)
  1. 5-FLUOROURACIL (5-FU) [Suspect]
     Active Substance: FLUOROURACIL
     Dates: end: 20170821

REACTIONS (8)
  - Small intestinal obstruction [None]
  - Ileus [None]
  - Impaired gastric emptying [None]
  - Asthenia [None]
  - Cholelithiasis [None]
  - Pneumoperitoneum [None]
  - Post procedural complication [None]
  - Pneumomediastinum [None]

NARRATIVE: CASE EVENT DATE: 20171010
